FAERS Safety Report 4873687-7 (Version None)
Quarter: 2006Q1

REPORT INFORMATION
  Report Type: 
  Country: None (occurrence: None)
  Receive Date: 20060104
  Receipt Date: 20060104
  Transmission Date: 20060701
  Serious: Yes (Life-Threatening)
  Sender: FDA-Public Use
  Company Number: None

PATIENT
  Age: 39 Year
  Sex: Male

DRUGS (2)
  1. ROBAXIN [Suspect]
     Dosage: 33,750MG  X1
     Dates: start: 20041105, end: 20041105
  2. TYLENOL [Suspect]
     Dosage: 2000MG   X1
     Dates: start: 20041105, end: 20041105

REACTIONS (4)
  - BRADYCARDIA [None]
  - ELECTROCARDIOGRAM QT CORRECTED INTERVAL PROLONGED [None]
  - OVERDOSE [None]
  - SUICIDAL IDEATION [None]
